FAERS Safety Report 25433852 (Version 2)
Quarter: 2025Q4

REPORT INFORMATION
  Report Type: Spontaneous
  Country: US (occurrence: US)
  Receive Date: 20250613
  Receipt Date: 20251009
  Transmission Date: 20260119
  Serious: Yes (Other)
  Sender: ACCORD
  Company Number: US-MLMSERVICE-20250602-PI522697-00077-2

PATIENT
  Age: 51 Year
  Sex: Female

DRUGS (10)
  1. CAPECITABINE [Suspect]
     Active Substance: CAPECITABINE
     Indication: Invasive ductal breast carcinoma
  2. TOPIRAMATE [Concomitant]
     Active Substance: TOPIRAMATE
     Dosage: LONGSTANDING WITHOUT DOSE ADJUSTMENTS
  3. LEVETIRACETAM [Concomitant]
     Active Substance: LEVETIRACETAM
     Dosage: LONGSTANDING WITHOUT DOSE ADJUSTMENTS
  4. CYCLOBENZAPRINE [Concomitant]
     Active Substance: CYCLOBENZAPRINE
     Dosage: LONGSTANDING WITHOUT DOSE ADJUSTMENTS
  5. GABAPENTIN [Concomitant]
     Active Substance: GABAPENTIN
     Dosage: LONGSTANDING WITHOUT DOSE ADJUSTMENTS
  6. OCRELIZUMAB [Concomitant]
     Active Substance: OCRELIZUMAB
     Dosage: LONGSTANDING WITHOUT DOSE ADJUSTMENTS
  7. LIOTHYRONINE [Concomitant]
     Active Substance: LIOTHYRONINE
     Dosage: LONGSTANDING WITHOUT DOSE ADJUSTMENTS
  8. FUROSEMIDE [Concomitant]
     Active Substance: FUROSEMIDE
     Dosage: LONGSTANDING WITHOUT DOSE ADJUSTMENTS
  9. SPIRONOLACTONE [Concomitant]
     Active Substance: SPIRONOLACTONE
     Dosage: LONGSTANDING WITHOUT DOSE ADJUSTMENTS
  10. PROPRANOLOL [Concomitant]
     Active Substance: PROPRANOLOL HYDROCHLORIDE
     Dosage: LONGSTANDING WITHOUT DOSE ADJUSTMENTS

REACTIONS (1)
  - Arteriospasm coronary [Unknown]
